FAERS Safety Report 12537447 (Version 2)
Quarter: 2016Q3

REPORT INFORMATION
  Report Type: Spontaneous
  Country: ES (occurrence: ES)
  Receive Date: 20160707
  Receipt Date: 20160826
  Transmission Date: 20161109
  Serious: Yes (Other)
  Sender: FDA-Public Use
  Company Number: ES-BAYER-2016-130318

PATIENT
  Sex: Female

DRUGS (2)
  1. ADEMPAS [Suspect]
     Active Substance: RIOCIGUAT
     Dosage: DOSE INCREASED UNTIL 1.5MG  OR 2.0 MG (PATIENT NOT SURE)
     Route: 048
  2. SINTROM [Concomitant]
     Active Substance: ACENOCOUMAROL
     Dosage: UNK

REACTIONS (4)
  - International normalised ratio abnormal [Unknown]
  - Epistaxis [Unknown]
  - International normalised ratio increased [Unknown]
  - Oedema peripheral [Unknown]
